FAERS Safety Report 10071063 (Version 2)
Quarter: 2014Q2

REPORT INFORMATION
  Report Type: Spontaneous
  Country: US (occurrence: US)
  Receive Date: 20140410
  Receipt Date: 20140515
  Transmission Date: 20141212
  Serious: Yes (Hospitalization)
  Sender: FDA-Public Use
  Company Number: US-INCYTE CORPORATION-2014IN000921

PATIENT
  Age: 64 Year
  Sex: Male
  Weight: 74.83 kg

DRUGS (3)
  1. JAKAFI [Suspect]
     Indication: MYELOFIBROSIS
     Dosage: 15 MG, BID
     Route: 048
     Dates: start: 20130703
  2. ALLOPURINOL [Concomitant]
     Dosage: 100 MG, UNK
  3. PLAVIX [Concomitant]
     Dosage: 75 MG, UNK

REACTIONS (1)
  - Squamous cell carcinoma of the tongue [Recovering/Resolving]
